FAERS Safety Report 10495696 (Version 4)
Quarter: 2015Q4

REPORT INFORMATION
  Report Type: Report from Study
  Country: ZW (occurrence: ZW)
  Receive Date: 20141003
  Receipt Date: 20151217
  Transmission Date: 20160304
  Serious: Yes (Other)
  Sender: FDA-Public Use
  Company Number: ZW-BRISTOL-MYERS SQUIBB COMPANY-21391164

PATIENT
  Age: 34 Year
  Sex: Female
  Weight: 66 kg

DRUGS (5)
  1. EFAVIRENZ [Suspect]
     Active Substance: EFAVIRENZ
     Indication: HIV INFECTION
     Dosage: 600 MG, QD
     Route: 048
     Dates: start: 20110531
  2. COMBIVIR [Concomitant]
     Active Substance: LAMIVUDINE\ZIDOVUDINE
     Dosage: 1 DF, BID
     Route: 065
     Dates: start: 20110531, end: 20140901
  3. ALUVIA [Concomitant]
     Active Substance: LOPINAVIR\RITONAVIR
     Dosage: 1 DF, BID
     Route: 065
     Dates: start: 20140731
  4. COMBIVIR [Concomitant]
     Active Substance: LAMIVUDINE\ZIDOVUDINE
     Indication: HIV INFECTION
     Dosage: 1 DF, BID
     Route: 048
     Dates: start: 20081107, end: 20081224
  5. ALUVIA [Concomitant]
     Active Substance: LOPINAVIR\RITONAVIR
     Indication: HIV INFECTION
     Dosage: 1 DF, UNK
     Route: 048
     Dates: start: 20081107, end: 20081224

REACTIONS (3)
  - Abortion induced [Recovering/Resolving]
  - Retained products of conception [Unknown]
  - Maternal exposure during pregnancy [Recovered/Resolved]

NARRATIVE: CASE EVENT DATE: 20140902
